FAERS Safety Report 13120274 (Version 2)
Quarter: 2017Q1

REPORT INFORMATION
  Report Type: Spontaneous
  Country: AU (occurrence: AU)
  Receive Date: 20170117
  Receipt Date: 20170119
  Transmission Date: 20170428
  Serious: No
  Sender: FDA-Public Use
  Company Number: AU-LUPIN PHARMACEUTICALS INC.-2016-05814

PATIENT
  Sex: Female

DRUGS (1)
  1. APO-DESVENLAFAXINE [Suspect]
     Active Substance: DESVENLAFAXINE
     Indication: ANTIDEPRESSANT THERAPY
     Route: 048
     Dates: start: 2010

REACTIONS (2)
  - Exposure during pregnancy [Unknown]
  - No adverse event [Unknown]
